FAERS Safety Report 16936898 (Version 1)
Quarter: 2019Q4

REPORT INFORMATION
  Report Type: Spontaneous
  Country: US (occurrence: US)
  Receive Date: 20191018
  Receipt Date: 20191018
  Transmission Date: 20200122
  Serious: Yes (Hospitalization, Other)
  Sender: FDA-Public Use
  Company Number: US-PROCTER_AND_GAMBLE-GS19110760

PATIENT
  Age: 26 Year
  Sex: Female

DRUGS (1)
  1. DIPHENHYDRAMINE HCL [Suspect]
     Active Substance: DIPHENHYDRAMINE HYDROCHLORIDE
     Dosage: 5000 MILLIGRAM
     Route: 065

REACTIONS (15)
  - Tachycardia [Recovering/Resolving]
  - Status epilepticus [Recovered/Resolved]
  - Pyrexia [Recovering/Resolving]
  - Seizure [Recovered/Resolved]
  - Toxicity to various agents [Unknown]
  - Intentional overdose [Unknown]
  - Suicide attempt [Unknown]
  - Electrocardiogram abnormal [Recovered/Resolved]
  - Cardiotoxicity [Unknown]
  - Body temperature increased [Recovering/Resolving]
  - Apparent life threatening event [Unknown]
  - Hypotension [Recovering/Resolving]
  - Electrocardiogram QT prolonged [Recovered/Resolved]
  - Neurotoxicity [Unknown]
  - Delirium [Unknown]
